FAERS Safety Report 8895758 (Version 2)
Quarter: 2012Q4

REPORT INFORMATION
  Report Type: Report from Study
  Country: AT (occurrence: AT)
  Receive Date: 20121107
  Receipt Date: 20121129
  Transmission Date: 20130627
  Serious: Yes (Death, Hospitalization)
  Sender: FDA-Public Use
  Company Number: AT-BAXTER-2012BAX022412

PATIENT
  Age: 76 Year
  Sex: Female

DRUGS (21)
  1. ENDOXAN BAXTER [Suspect]
     Indication: MALIGNANT BREAST NEOPLASM
     Route: 042
     Dates: start: 20120924
  2. ENDOXAN BAXTER [Suspect]
     Route: 042
     Dates: start: 20121015
  3. ENDOXAN BAXTER [Suspect]
     Route: 042
     Dates: start: 20121105
  4. FLUOROURACIL [Suspect]
     Indication: MALIGNANT BREAST NEOPLASM
     Route: 042
     Dates: start: 20120924
  5. FLUOROURACIL [Suspect]
     Route: 042
     Dates: start: 20121015
  6. FLUOROURACIL [Suspect]
     Route: 042
     Dates: start: 20121105
  7. EPIRUBICIN [Suspect]
     Indication: MALIGNANT BREAST NEOPLASM
     Route: 042
     Dates: start: 20120924
  8. EPIRUBICIN [Suspect]
     Route: 042
     Dates: start: 20121015
  9. EPIRUBICIN [Suspect]
     Route: 042
     Dates: start: 20121105
  10. SWEET ALMOND [Concomitant]
     Indication: DRUG USE FOR UNKNOWN INDICATION
     Route: 065
     Dates: start: 20121101
  11. NITROLIGUAL SPRAY [Concomitant]
     Indication: DRUG USE FOR UNKNOWN INDICATION
     Dosage: 4 ub
     Route: 060
     Dates: start: 20121106, end: 20121106
  12. MAXOLON [Concomitant]
     Indication: DRUG USE FOR UNKNOWN INDICATION
     Dosage: 20gtt
     Route: 065
     Dates: start: 20121106
  13. ONDANSETRON [Concomitant]
     Indication: DRUG USE FOR UNKNOWN INDICATION
     Route: 065
     Dates: start: 20120925
  14. DEXAMETHASONE [Concomitant]
     Indication: DRUG USE FOR UNKNOWN INDICATION
     Route: 065
     Dates: start: 20120924
  15. MESNA [Concomitant]
     Indication: DRUG USE FOR UNKNOWN INDICATION
     Route: 065
     Dates: start: 20120924
  16. NEULASTA [Concomitant]
     Indication: DRUG USE FOR UNKNOWN INDICATION
     Route: 065
     Dates: start: 20120925
  17. ZOFRAN [Concomitant]
     Indication: DRUG USE FOR UNKNOWN INDICATION
     Route: 065
     Dates: start: 20120924
  18. LISINOPRIL [Concomitant]
     Indication: DRUG USE FOR UNKNOWN INDICATION
     Route: 065
  19. NOVALGIN [Concomitant]
     Indication: DRUG USE FOR UNKNOWN INDICATION
     Route: 065
  20. CALCIUM AND VITAMIN D [Concomitant]
     Indication: DRUG USE FOR UNKNOWN INDICATION
     Route: 065
  21. MEXALEN [Concomitant]
     Indication: DRUG USE FOR UNKNOWN INDICATION
     Dates: start: 20121106

REACTIONS (1)
  - General physical health deterioration [Recovered/Resolved]
